FAERS Safety Report 6982336-3 (Version None)
Quarter: 2010Q3

REPORT INFORMATION
  Report Type: 
  Country: None (occurrence: None)
  Receive Date: 20100914
  Receipt Date: 20091222
  Transmission Date: 20110219
  Serious: No
  Sender: FDA-Public Use
  Company Number: US-PFIZER INC-2009314919

PATIENT
  Sex: Female
  Weight: 52.163 kg

DRUGS (4)
  1. LYRICA [Suspect]
     Indication: BACK PAIN
     Dosage: 75 MG, 1X/DAY
     Dates: start: 20090101, end: 20091219
  2. HYDROCODONE [Suspect]
     Indication: BACK PAIN
     Dosage: UNK
     Dates: start: 20091219
  3. AVALIDE [Concomitant]
     Indication: HYPERTENSION
     Dosage: 150/125 MG
  4. ACIPHEX [Concomitant]
     Dosage: 20 MG, UNK

REACTIONS (4)
  - DRUG INEFFECTIVE [None]
  - INSOMNIA [None]
  - NAUSEA [None]
  - WITHDRAWAL SYNDROME [None]
